FAERS Safety Report 9871612 (Version 2)
Quarter: 2014Q3

REPORT INFORMATION
  Report Type: Spontaneous
  Country: CA (occurrence: CA)
  Receive Date: 20140205
  Receipt Date: 20140908
  Transmission Date: 20150326
  Serious: Yes (Death, Other)
  Sender: FDA-Public Use
  Company Number: CA-ABBVIE-14P-028-1198357-00

PATIENT
  Age: 69 Year
  Sex: Female
  Weight: 55 kg

DRUGS (3)
  1. LIPIDIL EZ [Suspect]
     Active Substance: FENOFIBRATE
     Indication: BILIARY CIRRHOSIS PRIMARY
     Route: 048
     Dates: start: 20120725, end: 20130101
  2. PREVACID [Concomitant]
     Active Substance: LANSOPRAZOLE
     Indication: PRODUCT USED FOR UNKNOWN INDICATION
  3. URSODEOXYCHOLIC ACID [Concomitant]
     Active Substance: URSODIOL
     Indication: PRODUCT USED FOR UNKNOWN INDICATION
     Route: 048
     Dates: start: 199601

REACTIONS (9)
  - Blood albumin abnormal [Fatal]
  - Hepatic cirrhosis [Fatal]
  - Hepatic failure [Fatal]
  - International normalised ratio increased [Fatal]
  - Blood bilirubin increased [Fatal]
  - Condition aggravated [Fatal]
  - Platelet count increased [Fatal]
  - Aspartate aminotransferase increased [Fatal]
  - Alanine aminotransferase increased [Fatal]
